FAERS Safety Report 8962801 (Version 1)
Quarter: 2012Q4

REPORT INFORMATION
  Report Type: 
  Country: GR (occurrence: GR)
  Receive Date: 20121214
  Receipt Date: 20121214
  Transmission Date: 20130627
  Serious: Yes (Other)
  Sender: FDA-Public Use
  Company Number: GR-ASTELLAS-2012US012094

PATIENT
  Age: 82 Year
  Sex: Male

DRUGS (2)
  1. TARCEVA [Suspect]
     Indication: LUNG NEOPLASM MALIGNANT
     Dosage: 150 mg, UID/QD
     Route: 048
  2. TARCEVA [Suspect]
     Dosage: 100 mg, UID/QD
     Route: 048

REACTIONS (3)
  - Swelling face [Recovered/Resolved]
  - Abdominal discomfort [Recovered/Resolved]
  - Rash [Not Recovered/Not Resolved]
